FAERS Safety Report 8446584-8 (Version None)
Quarter: 2012Q2

REPORT INFORMATION
  Report Type: 
  Country: None (occurrence: None)
  Receive Date: 20120619
  Receipt Date: 20120609
  Transmission Date: 20120825
  Serious: Yes (Other)
  Sender: FDA-Public Use
  Company Number: CO-AMGEN-COLSP2012037229

PATIENT
  Age: 63 Year
  Sex: Female

DRUGS (6)
  1. CALCITROL                          /00508501/ [Concomitant]
     Dosage: UNK
  2. CALCIUM [Concomitant]
     Dosage: UNK
  3. ENBREL [Suspect]
     Indication: RHEUMATOID ARTHRITIS
     Dosage: 50 MG, WEEKLY
     Route: 058
     Dates: start: 20080101
  4. PREDNISOLONE [Concomitant]
     Indication: RHEUMATOID ARTHRITIS
     Dosage: 5MG, HALF A TABLET IN THE MORNING AND ONE NIGHT ORALLY
     Route: 048
     Dates: start: 20000101
  5. METHOTREXATE [Concomitant]
     Indication: RHEUMATOID ARTHRITIS
     Dosage: 3 TABLETS ON SATURDAY AND 3 ON SUNDAY VIA ORAL
     Route: 048
     Dates: start: 20000101
  6. OMEPRAZOLE [Concomitant]
     Indication: GASTRITIS
     Dosage: 1X/D?-A IN FASTING VIA ORAL
     Route: 048

REACTIONS (4)
  - EYE DISORDER [None]
  - FEAR [None]
  - PYREXIA [None]
  - CHILLS [None]
